FAERS Safety Report 9114209 (Version 2)
Quarter: 2013Q1

REPORT INFORMATION
  Report Type: Spontaneous
  Country: US (occurrence: US)
  Receive Date: 20130129
  Receipt Date: 20130308
  Transmission Date: 20140127
  Serious: No
  Sender: FDA-Public Use
  Company Number: US-PFIZER INC-2013034968

PATIENT
  Age: 64 Year
  Sex: Female
  Weight: 86.17 kg

DRUGS (3)
  1. GEODON [Suspect]
     Indication: BIPOLAR DISORDER
     Dosage: 40 MG, AS NEEDED
     Dates: start: 2012
  2. GEODON [Suspect]
     Indication: INSOMNIA
  3. INSULIN [Concomitant]
     Indication: DIABETES MELLITUS
     Dosage: 20 IU, AS NEEDED

REACTIONS (3)
  - Off label use [Unknown]
  - Rhinorrhoea [Not Recovered/Not Resolved]
  - Weight increased [Not Recovered/Not Resolved]
